FAERS Safety Report 7911084-8 (Version None)
Quarter: 2011Q4

REPORT INFORMATION
  Report Type: 
  Country: None (occurrence: None)
  Receive Date: 20111114
  Receipt Date: 20111031
  Transmission Date: 20120403
  Serious: Yes (Other)
  Sender: FDA-Public Use
  Company Number: US-RANBAXY-2011RR-48872

PATIENT
  Sex: Male
  Weight: 115.91 kg

DRUGS (5)
  1. PREDNISOLONE [Suspect]
  2. CIPRO [Suspect]
     Dosage: 500 MG, UNK
     Route: 048
     Dates: start: 20100113
  3. LEVAQUIN [Suspect]
     Indication: BIOPSY PROSTATE
     Dosage: 500 MG, UNK
     Route: 048
     Dates: start: 20100329
  4. LEVAQUIN [Suspect]
     Indication: PROSTATE INFECTION
     Dosage: 500 MG, QD
     Route: 048
     Dates: start: 20100304
  5. PREDNISOLONE [Suspect]
     Indication: DERMATITIS CONTACT
     Dosage: UNK
     Route: 065

REACTIONS (2)
  - TENDON RUPTURE [None]
  - PLANTAR FASCIITIS [None]
